FAERS Safety Report 14478074 (Version 7)
Quarter: 2022Q4

REPORT INFORMATION
  Report Type: Spontaneous
  Country: US (occurrence: None)
  Receive Date: 20180202
  Receipt Date: 20221125
  Transmission Date: 20230112
  Serious: Yes (Hospitalization, Other)
  Sender: FDA-Public Use
  Company Number: 2018SE11774

PATIENT
  Age: 19768 Day
  Sex: Female
  Weight: 59.4 kg

DRUGS (79)
  1. NEXIUM [Suspect]
     Active Substance: ESOMEPRAZOLE MAGNESIUM
     Indication: Gastrooesophageal reflux disease
     Dosage: UNK, NUMEROUS OCCASIONS
     Route: 048
     Dates: start: 2005, end: 2011
  2. NEXIUM [Suspect]
     Active Substance: ESOMEPRAZOLE MAGNESIUM
     Indication: Gastrooesophageal reflux disease
     Dosage: UNK, NUMEROUS OCCASIONS
     Route: 048
     Dates: start: 2005, end: 2011
  3. NEXIUM [Suspect]
     Active Substance: ESOMEPRAZOLE MAGNESIUM
     Indication: Gastrooesophageal reflux disease
     Route: 048
     Dates: start: 2005, end: 2006
  4. NEXIUM [Suspect]
     Active Substance: ESOMEPRAZOLE MAGNESIUM
     Indication: Gastrooesophageal reflux disease
     Route: 048
     Dates: start: 2005, end: 2006
  5. NEXIUM 24HR [Suspect]
     Active Substance: ESOMEPRAZOLE MAGNESIUM
     Indication: Gastrooesophageal reflux disease
     Route: 048
     Dates: start: 201801
  6. NEXIUM 24HR [Suspect]
     Active Substance: ESOMEPRAZOLE MAGNESIUM
     Indication: Gastrooesophageal reflux disease
     Route: 048
     Dates: start: 201801
  7. PRILOSEC [Suspect]
     Active Substance: OMEPRAZOLE MAGNESIUM
     Indication: Gastrooesophageal reflux disease
     Route: 048
  8. DEXILANT [Suspect]
     Active Substance: DEXLANSOPRAZOLE
     Indication: Gastrooesophageal reflux disease
     Route: 065
     Dates: start: 2016
  9. PROTONIX [Suspect]
     Active Substance: PANTOPRAZOLE SODIUM
     Indication: Gastrooesophageal reflux disease
     Dosage: UNK, NUMEROUS OCCASIONS
     Route: 065
     Dates: start: 2005, end: 2011
  10. PROTONIX [Suspect]
     Active Substance: PANTOPRAZOLE SODIUM
     Indication: Gastrooesophageal reflux disease
     Dosage: UNK, NUMEROUS OCCASIONS
     Route: 065
     Dates: start: 2005, end: 2011
  11. PROTONIX [Suspect]
     Active Substance: PANTOPRAZOLE SODIUM
     Indication: Gastrooesophageal reflux disease
     Route: 065
     Dates: start: 2006, end: 2007
  12. PROTONIX [Suspect]
     Active Substance: PANTOPRAZOLE SODIUM
     Indication: Gastrooesophageal reflux disease
     Route: 065
     Dates: start: 2006, end: 2007
  13. PROTONIX [Suspect]
     Active Substance: PANTOPRAZOLE SODIUM
     Indication: Gastrooesophageal reflux disease
     Dosage: 40.0MG UNKNOWN
     Route: 048
     Dates: start: 20090917
  14. PROTONIX [Suspect]
     Active Substance: PANTOPRAZOLE SODIUM
     Indication: Gastrooesophageal reflux disease
     Dosage: 40.0MG UNKNOWN
     Route: 048
     Dates: start: 20090917
  15. PROTONIX [Suspect]
     Active Substance: PANTOPRAZOLE SODIUM
     Indication: Gastrooesophageal reflux disease
     Dosage: GENERIC 40 MG EVERYDAY UNKNOWN
     Route: 065
     Dates: start: 2009, end: 2015
  16. PROTONIX [Suspect]
     Active Substance: PANTOPRAZOLE SODIUM
     Indication: Gastrooesophageal reflux disease
     Dosage: GENERIC 40 MG EVERYDAY UNKNOWN
     Route: 065
     Dates: start: 2009, end: 2015
  17. OXYCODONE HYDROCHLORIDE [Concomitant]
     Active Substance: OXYCODONE HYDROCHLORIDE
     Dosage: 15.0MG UNKNOWN
     Dates: start: 20120608
  18. FLUZONE [Concomitant]
     Active Substance: INFLUENZA A VIRUS A/CALIFORNIA/7/2009 X-179A (H1N1) ANTIGEN (FORMALDEHYDE INACTIVATED)\INFLUENZA A V
  19. PREMPRO [Concomitant]
     Active Substance: ESTROGENS, CONJUGATED\MEDROXYPROGESTERONE ACETATE
  20. APIS MELLIFICA/FUMARIC ACID/MYOSOTIS ARVENSIS/MAGNESIUM PHOSPHATE/OXAL [Concomitant]
     Dosage: 112.0UG UNKNOWN
     Dates: start: 20120402
  21. LISINOPRIL [Concomitant]
     Active Substance: LISINOPRIL
     Dosage: 10.0MG UNKNOWN
     Dates: start: 20120531
  22. ACETAMINOPHEN\HYDROCODONE BITARTRATE [Concomitant]
     Active Substance: ACETAMINOPHEN\HYDROCODONE BITARTRATE
  23. SINGULAIR [Concomitant]
     Active Substance: MONTELUKAST SODIUM
     Dosage: 10.0MG UNKNOWN
     Dates: start: 20120511
  24. DETROL [Concomitant]
     Active Substance: TOLTERODINE TARTRATE
     Dosage: 4.0MG UNKNOWN
     Dates: start: 20120110
  25. OPANA [Concomitant]
     Active Substance: OXYMORPHONE HYDROCHLORIDE
     Dosage: 30.0MG UNKNOWN
     Dates: start: 20111207
  26. SPIRIVA [Concomitant]
     Active Substance: TIOTROPIUM BROMIDE MONOHYDRATE
  27. VENTOLIN [Concomitant]
     Active Substance: ALBUTEROL SULFATE
  28. ZANAFLEX [Concomitant]
     Active Substance: TIZANIDINE HYDROCHLORIDE
  29. NEURONTIN [Concomitant]
     Active Substance: GABAPENTIN
  30. SYNTHROID [Concomitant]
     Active Substance: LEVOTHYROXINE SODIUM
  31. MIRAPEX [Concomitant]
     Active Substance: PRAMIPEXOLE DIHYDROCHLORIDE
  32. ALPRAZOLAM [Concomitant]
     Active Substance: ALPRAZOLAM
  33. ALDACTAZIDE [Concomitant]
     Active Substance: HYDROCHLOROTHIAZIDE\SPIRONOLACTONE
  34. VALSARTAN [Concomitant]
     Active Substance: VALSARTAN
  35. PRAVASTATIN [Concomitant]
     Active Substance: PRAVASTATIN
  36. BONIVA [Concomitant]
     Active Substance: IBANDRONATE SODIUM
  37. CLONIDINE [Concomitant]
     Active Substance: CLONIDINE
  38. ELAVIL [Concomitant]
     Active Substance: AMITRIPTYLINE HYDROCHLORIDE
  39. GAMUNEX [Concomitant]
     Active Substance: HUMAN IMMUNOGLOBULIN G
  40. BREO ELLIPTA [Concomitant]
     Active Substance: FLUTICASONE FUROATE\VILANTEROL TRIFENATATE
  41. ADVAIR DISKUS [Concomitant]
     Active Substance: FLUTICASONE PROPIONATE\SALMETEROL XINAFOATE
  42. ESTRACE [Concomitant]
     Active Substance: ESTRADIOL
  43. MEDROL [Concomitant]
     Active Substance: METHYLPREDNISOLONE
  44. LEVAQUIN [Concomitant]
     Active Substance: LEVOFLOXACIN
  45. NORVASC [Concomitant]
     Active Substance: AMLODIPINE BESYLATE
  46. PROVIGIL [Concomitant]
     Active Substance: MODAFINIL
  47. PATADAY [Concomitant]
     Active Substance: OLOPATADINE HYDROCHLORIDE
  48. LEVALBUTEROL [Concomitant]
     Active Substance: LEVALBUTEROL
  49. BETHANECHOL [Concomitant]
     Active Substance: BETHANECHOL
  50. FLUCONAZOLE [Concomitant]
     Active Substance: FLUCONAZOLE
  51. ACLIDINIUM BROMIDE [Concomitant]
     Active Substance: ACLIDINIUM BROMIDE
  52. BENADRYL [Concomitant]
     Active Substance: DIPHENHYDRAMINE HYDROCHLORIDE
  53. SODIUM CHLORIDE [Concomitant]
     Active Substance: SODIUM CHLORIDE
  54. FLUTICASONE [Concomitant]
     Active Substance: FLUTICASONE
  55. ROFLUMILAST [Concomitant]
     Active Substance: ROFLUMILAST
  56. TIOTROPIUM [Concomitant]
     Active Substance: TIOTROPIUM
  57. BUDESONIDE [Concomitant]
     Active Substance: BUDESONIDE
  58. VICODIN [Concomitant]
     Active Substance: ACETAMINOPHEN\HYDROCODONE BITARTRATE
  59. VITAMINS [Concomitant]
     Active Substance: VITAMINS
  60. CALCIUM [Concomitant]
     Active Substance: CALCIUM
  61. PREVNAR [Concomitant]
     Active Substance: PNEUMOCOCCAL 7-VALENT CONJUGATE VACCINE (DIPHTHERIA CRM197 PROTEIN)
  62. ERYTHROCIN [Concomitant]
     Active Substance: ERYTHROMYCIN LACTOBIONATE
  63. XOPENEX [Concomitant]
     Active Substance: LEVALBUTEROL HYDROCHLORIDE
  64. DIPHENHYDRAMINE HYDROCHLORIDE [Concomitant]
     Active Substance: DIPHENHYDRAMINE HYDROCHLORIDE
  65. METHYLPREDNISOLONE [Concomitant]
     Active Substance: METHYLPREDNISOLONE
  66. PREMPRO [Concomitant]
     Active Substance: ESTROGENS, CONJUGATED\MEDROXYPROGESTERONE ACETATE
  67. LEVALBUTEROL [Concomitant]
     Active Substance: LEVALBUTEROL
  68. MODAFINIL [Concomitant]
     Active Substance: MODAFINIL
  69. TUDORZA PRESSAIR [Concomitant]
     Active Substance: ACLIDINIUM BROMIDE
  70. BYSTOLIC [Concomitant]
     Active Substance: NEBIVOLOL HYDROCHLORIDE
  71. ZOSTAVAX [Concomitant]
     Active Substance: VARICELLA-ZOSTER VIRUS STRAIN OKA/MERCK LIVE ANTIGEN
  72. DALIRESP [Concomitant]
     Active Substance: ROFLUMILAST
  73. PRAMIPEXOLE [Concomitant]
     Active Substance: PRAMIPEXOLE
  74. FAMOTIDINE [Concomitant]
     Active Substance: FAMOTIDINE
  75. NYSTATIN [Concomitant]
     Active Substance: NYSTATIN
  76. DOXYCYCLINE [Concomitant]
     Active Substance: DOXYCYCLINE
  77. METOPROLOL TARTRATE [Concomitant]
     Active Substance: METOPROLOL TARTRATE
  78. DEXAMETHASONE [Concomitant]
     Active Substance: DEXAMETHASONE
  79. SPIRONOLACTONE [Concomitant]
     Active Substance: SPIRONOLACTONE

REACTIONS (6)
  - Acute kidney injury [Unknown]
  - Chronic kidney disease [Not Recovered/Not Resolved]
  - Renal injury [Unknown]
  - Renal failure [Unknown]
  - Chronic obstructive pulmonary disease [Unknown]
  - Chronic kidney disease-mineral and bone disorder [Unknown]

NARRATIVE: CASE EVENT DATE: 20100407
